FAERS Safety Report 6421061-4 (Version None)
Quarter: 2009Q4

REPORT INFORMATION
  Report Type: 
  Country: None (occurrence: None)
  Receive Date: 20091030
  Receipt Date: 20091020
  Transmission Date: 20100525
  Serious: Yes (Death, Hospitalization)
  Sender: FDA-Public Use
  Company Number: US-JNJFOC-20090703352

PATIENT
  Sex: Male
  Weight: 129.28 kg

DRUGS (19)
  1. REMICADE [Suspect]
     Route: 042
  2. REMICADE [Suspect]
     Route: 042
  3. REMICADE [Suspect]
     Route: 042
  4. REMICADE [Suspect]
     Indication: RHEUMATOID ARTHRITIS
     Dosage: 1 EVERY 8 WEEKS
     Route: 042
  5. CINNAMON [Concomitant]
  6. CALCIUM [Concomitant]
  7. FIBERCON [Concomitant]
  8. HUMULIN 70/30 [Concomitant]
     Dosage: AT DINNER TIME
     Route: 058
  9. HUMULIN 70/30 [Concomitant]
     Dosage: AT BREAKFAST
     Route: 058
  10. IMDUR [Concomitant]
  11. LACTULOSE [Concomitant]
  12. TOPROL-XL [Concomitant]
  13. NEOMYCIN SULFATE [Concomitant]
  14. NITROSTAT [Concomitant]
  15. PRILOSEC [Concomitant]
  16. PRAVACHOL [Concomitant]
  17. ALDACTONE [Concomitant]
  18. MULTIVITAMIN [Concomitant]
  19. VITAMIN D [Concomitant]

REACTIONS (7)
  - HAEMOGLOBIN DECREASED [None]
  - HEPATIC ENCEPHALOPATHY [None]
  - HEPATITIS C [None]
  - HEPATORENAL SYNDROME [None]
  - MYOCARDIAL INFARCTION [None]
  - PLEURAL EFFUSION [None]
  - PULMONARY OEDEMA [None]
